FAERS Safety Report 10477412 (Version 2)
Quarter: 2014Q3

REPORT INFORMATION
  Report Type: Spontaneous
  Country: US (occurrence: US)
  Receive Date: 20140926
  Receipt Date: 20140926
  Transmission Date: 20150326
  Serious: Yes (Death)
  Sender: FDA-Public Use
  Company Number: US-JNJFOC-20090701183

PATIENT
  Age: 1 Year
  Sex: Male

DRUGS (1)
  1. UNKNOWN ACETAMINOPHEN [Suspect]
     Active Substance: ACETAMINOPHEN
     Indication: PRODUCT USED FOR UNKNOWN INDICATION
     Route: 048

REACTIONS (10)
  - Hypoxic-ischaemic encephalopathy [None]
  - Pulmonary oedema [Fatal]
  - Respiratory arrest [None]
  - Death [Fatal]
  - Encephalopathy [Fatal]
  - Choking [None]
  - Apnoea [Fatal]
  - Foreign body [None]
  - Brain oedema [Fatal]
  - Tracheal obstruction [None]

NARRATIVE: CASE EVENT DATE: 19950503
